FAERS Safety Report 9612443 (Version 1)
Quarter: 2013Q4

REPORT INFORMATION
  Report Type: Spontaneous
  Country: US (occurrence: US)
  Receive Date: 20131010
  Receipt Date: 20131010
  Transmission Date: 20140711
  Serious: Yes (Hospitalization)
  Sender: FDA-Public Use
  Company Number: US-BAYER-2013-122241

PATIENT
  Age: 24 Year
  Sex: Male

DRUGS (4)
  1. BETASERON [Suspect]
     Indication: MULTIPLE SCLEROSIS
     Dosage: 1 ML, QOD
     Route: 058
     Dates: start: 2003
  2. TYLENOL [PARACETAMOL] [Concomitant]
     Dosage: 325 MG
  3. IBUPROFEN [Concomitant]
     Dosage: 200 MG
  4. BENADRYL [Concomitant]
     Dosage: 25 MG

REACTIONS (4)
  - Multiple sclerosis relapse [Unknown]
  - Pain [Unknown]
  - Depression [Recovered/Resolved]
  - Injection site scar [Unknown]
